FAERS Safety Report 18634459 (Version 1)
Quarter: 2020Q4

REPORT INFORMATION
  Report Type: Report from Study
  Country: None (occurrence: US)
  Receive Date: 20201218
  Receipt Date: 20201218
  Transmission Date: 20210114
  Serious: Yes (Disabling)
  Sender: FDA-Public Use
  Company Number: US-ABBVIE-20K-163-3691718-00

PATIENT
  Sex: Female

DRUGS (1)
  1. SKYRIZI [Suspect]
     Active Substance: RISANKIZUMAB-RZAA
     Indication: PSORIASIS
     Dosage: 2 SYRINGES.
     Route: 058

REACTIONS (5)
  - Disability [Unknown]
  - Skin plaque [Unknown]
  - Pruritus [Unknown]
  - Diabetes mellitus [Unknown]
  - Skin exfoliation [Unknown]
